FAERS Safety Report 23097504 (Version 1)
Quarter: 2023Q4

REPORT INFORMATION
  Report Type: Spontaneous
  Country: AT (occurrence: AT)
  Receive Date: 20231023
  Receipt Date: 20231023
  Transmission Date: 20240110
  Serious: Yes (Other)
  Sender: FDA-Public Use
  Company Number: AT-JNJFOC-20231036259

PATIENT
  Age: 4 Decade
  Sex: Female

DRUGS (1)
  1. PONVORY [Suspect]
     Active Substance: PONESIMOD
     Indication: Multiple sclerosis
     Route: 048
     Dates: start: 20220301

REACTIONS (3)
  - Liver disorder [Recovered/Resolved]
  - Blood disorder [Recovered/Resolved]
  - Lymphatic disorder [Recovered/Resolved]

NARRATIVE: CASE EVENT DATE: 20220901
